FAERS Safety Report 6820423-0 (Version None)
Quarter: 2010Q3

REPORT INFORMATION
  Report Type: 
  Country: None (occurrence: None)
  Receive Date: 20100707
  Receipt Date: 20100705
  Transmission Date: 20110219
  Serious: Yes (Congenital Anomaly)
  Sender: FDA-Public Use
  Company Number: GB-PERRIGO-10GB010982

PATIENT

DRUGS (1)
  1. IBUPROFEN [Suspect]
     Indication: DRUG EXPOSURE DURING PREGNANCY
     Dosage: 7.2 G, SINGLE
     Route: 064

REACTIONS (2)
  - DRUG EXPOSURE DURING PREGNANCY [None]
  - DUCTUS ARTERIOSUS PREMATURE CLOSURE [None]
